FAERS Safety Report 9414502 (Version 1)
Quarter: 2013Q3

REPORT INFORMATION
  Report Type: Report from Study
  Country: HU (occurrence: HU)
  Receive Date: 20130723
  Receipt Date: 20130723
  Transmission Date: 20140515
  Serious: Yes (Other)
  Sender: FDA-Public Use
  Company Number: HU-GLAXOSMITHKLINE-B0909811A

PATIENT
  Sex: Male

DRUGS (3)
  1. SERETIDE DISKUS [Suspect]
     Indication: ASTHMA
     Dosage: 1PUFF TWICE PER DAY
     Route: 055
  2. ADEXOR [Concomitant]
     Dosage: 35MG TWICE PER DAY
  3. COVEREX [Concomitant]
     Dosage: 5MG PER DAY

REACTIONS (1)
  - Angina pectoris [Recovered/Resolved]
